FAERS Safety Report 8581370-X (Version None)
Quarter: 2012Q3

REPORT INFORMATION
  Report Type: 
  Country: None (occurrence: None)
  Receive Date: 20120809
  Receipt Date: 20111216
  Transmission Date: 20120928
  Serious: No
  Sender: FDA-Public Use
  Company Number: US-ASTRAZENECA-2011SE76673

PATIENT
  Age: 64 Year
  Sex: Male

DRUGS (2)
  1. SEROQUEL [Suspect]
     Indication: DEPRESSION
     Dosage: 50MG, TWO TABLETS AT BEDTIME
     Route: 048
  2. SEROQUEL [Suspect]
     Indication: ANXIETY
     Dosage: 50MG, TWO TABLETS AT BEDTIME
     Route: 048

REACTIONS (3)
  - INSOMNIA [None]
  - OFF LABEL USE [None]
  - DRUG DOSE OMISSION [None]
